FAERS Safety Report 6381588-0 (Version None)
Quarter: 2009Q3

REPORT INFORMATION
  Report Type: 
  Country: None (occurrence: None)
  Receive Date: 20090925
  Receipt Date: 20090914
  Transmission Date: 20100115
  Serious: Yes (Hospitalization)
  Sender: FDA-Public Use
  Company Number: 2009-03453

PATIENT
  Age: 63 Year
  Sex: Male

DRUGS (2)
  1. VELCADE [Suspect]
     Indication: MULTIPLE MYELOMA
     Dosage: 1.8 MG, INTRAVENOUS
     Route: 042
     Dates: start: 20090721, end: 20090731
  2. DEXAMETHASONE 0.5MG TAB [Concomitant]

REACTIONS (9)
  - ABDOMINAL DISTENSION [None]
  - ALTERED STATE OF CONSCIOUSNESS [None]
  - BLOOD CREATININE INCREASED [None]
  - EUPHORIC MOOD [None]
  - FASCIITIS [None]
  - INCOHERENT [None]
  - OEDEMA PERIPHERAL [None]
  - PANNICULITIS [None]
  - PROTEINURIA [None]
